FAERS Safety Report 23652925 (Version 5)
Quarter: 2024Q2

REPORT INFORMATION
  Report Type: Spontaneous
  Country: US (occurrence: US)
  Receive Date: 20240320
  Receipt Date: 20240430
  Transmission Date: 20240716
  Serious: No
  Sender: FDA-Public Use
  Company Number: US-PFIZER INC-202400055389

PATIENT
  Age: 14 Year
  Sex: Male
  Weight: 58.97 kg

DRUGS (1)
  1. GENOTROPIN [Suspect]
     Active Substance: SOMATROPIN
     Indication: Blood growth hormone decreased
     Dosage: 2.2 MILLIGRAMS, ONCE A DAY

REACTIONS (4)
  - Device physical property issue [Unknown]
  - Device malfunction [Unknown]
  - Device information output issue [Unknown]
  - Drug dose omission by device [Unknown]
